FAERS Safety Report 20752007 (Version 1)
Quarter: 2022Q2

REPORT INFORMATION
  Report Type: Spontaneous
  Country: US (occurrence: US)
  Receive Date: 20220426
  Receipt Date: 20220426
  Transmission Date: 20220721
  Serious: Yes (Life-Threatening, Hospitalization, Other)
  Sender: FDA-Public Use
  Company Number: US-MLMSERVICE-20220414-3495819-1

PATIENT
  Age: 67 Year
  Sex: Female

DRUGS (2)
  1. THEOPHYLLINE ANHYDROUS [Interacting]
     Active Substance: THEOPHYLLINE ANHYDROUS
     Indication: Asthma
     Dosage: 600 MILLIGRAM, Q12H, STABLE DOSE, NEARLY 50 YEARS
     Route: 065
  2. FLUVOXAMINE [Interacting]
     Active Substance: FLUVOXAMINE
     Indication: COVID-19
     Dosage: UNKNOWN
     Route: 065

REACTIONS (5)
  - Drug interaction [Recovered/Resolved]
  - Hallucination [Recovered/Resolved]
  - Seizure [Recovered/Resolved]
  - Toxicity to various agents [Recovered/Resolved]
  - Atrial fibrillation [Recovered/Resolved]
